FAERS Safety Report 21312520 (Version 1)
Quarter: 2022Q3

REPORT INFORMATION
  Report Type: Spontaneous
  Country: US (occurrence: None)
  Receive Date: 20220909
  Receipt Date: 20220909
  Transmission Date: 20221027
  Serious: No
  Sender: FDA-Public Use
  Company Number: US-ARIS GLOBAL-202206-1171

PATIENT
  Sex: Female

DRUGS (13)
  1. OXERVATE [Suspect]
     Active Substance: CENEGERMIN-BKBJ
     Indication: Neurotrophic keratopathy
     Route: 047
     Dates: start: 20220613
  2. OXERVATE [Suspect]
     Active Substance: CENEGERMIN-BKBJ
     Indication: Ulcerative keratitis
  3. LATANOPROST [Concomitant]
     Active Substance: LATANOPROST
  4. PREDNISOLONE ACETATE [Concomitant]
     Active Substance: PREDNISOLONE ACETATE
     Dosage: DROPS SUSPENSION
  5. ASPIRIN [Concomitant]
     Active Substance: ASPIRIN
  6. REFRESH OPTIVE [Concomitant]
     Active Substance: CARBOXYMETHYLCELLULOSE SODIUM\GLYCERIN
     Dosage: 0.5%-0.9%
  7. REFRESH CELLUVISC [Concomitant]
     Active Substance: CARBOXYMETHYLCELLULOSE SODIUM
     Dosage: DROPPER GEL
  8. BRIMONIDINE TARTRATE [Concomitant]
     Active Substance: BRIMONIDINE TARTRATE
  9. ACYCLOVIR [Concomitant]
     Active Substance: ACYCLOVIR
  10. METOPROLOL SUCCINATE [Concomitant]
     Active Substance: METOPROLOL SUCCINATE
  11. SIMVASTATIN [Concomitant]
     Active Substance: SIMVASTATIN
  12. METFORMIN HYDROCHLORIDE [Concomitant]
     Active Substance: METFORMIN HYDROCHLORIDE
  13. GLIPIZIDE [Concomitant]
     Active Substance: GLIPIZIDE

REACTIONS (2)
  - Vision blurred [Unknown]
  - Eye pain [Unknown]
